FAERS Safety Report 6371294-0 (Version None)
Quarter: 2009Q3

REPORT INFORMATION
  Report Type: 
  Country: None (occurrence: None)
  Receive Date: 20090918
  Receipt Date: 20090904
  Transmission Date: 20100115
  Serious: Yes (Other)
  Sender: FDA-Public Use
  Company Number: 8052144

PATIENT
  Sex: Male

DRUGS (4)
  1. KEPPRA [Suspect]
     Dosage: 1000 MG 3/D
  2. VIMPAT [Suspect]
     Dosage: 100 MG 3/D
  3. OXCARBAZEPINE [Suspect]
     Dosage: 600 MG 2/D
  4. PLAVIX [Suspect]

REACTIONS (2)
  - CONVULSION [None]
  - DRUG INTERACTION [None]
